FAERS Safety Report 4650914-2 (Version None)
Quarter: 2005Q2

REPORT INFORMATION
  Report Type: 
  Country: None (occurrence: None)
  Receive Date: 20050503
  Receipt Date: 20050422
  Transmission Date: 20051028
  Serious: Yes (Other)
  Sender: FDA-Public Use
  Company Number: PHBS2005FR05865

PATIENT
  Age: 67 Year
  Sex: Female

DRUGS (5)
  1. SANDIMMUNE [Suspect]
     Indication: RENAL TRANSPLANT
     Dosage: UNK, UNK
     Dates: end: 19970401
  2. NEORAL [Suspect]
     Indication: RENAL TRANSPLANT
     Dosage: UNK, UNK
     Dates: start: 19970401, end: 19971001
  3. AZATHIOPRINE [Concomitant]
     Dosage: 75 MG/DAY
  4. CORTICOSTEROIDS [Concomitant]
     Dosage: 1 MG/KG/DAY
  5. CORTICOSTEROIDS [Concomitant]
     Dosage: 7.5 MG/DAY

REACTIONS (2)
  - NEUROMYOPATHY [None]
  - SENSORIMOTOR DISORDER [None]
